FAERS Safety Report 5491481-3 (Version None)
Quarter: 2007Q4

REPORT INFORMATION
  Report Type: 
  Country: None (occurrence: None)
  Receive Date: 20071022
  Receipt Date: 20071012
  Transmission Date: 20080405
  Serious: Yes (Hospitalization, Other)
  Sender: FDA-Public Use
  Company Number: PHEH2007US04486

PATIENT
  Age: 71 Year
  Sex: Female

DRUGS (7)
  1. ZELNORM [Suspect]
     Indication: IRRITABLE BOWEL SYNDROME
     Dosage: 6 MG, BID
     Dates: start: 20061201, end: 20070405
  2. SOTALOL HYDROCHLORIDE [Concomitant]
     Indication: HYPERTENSION
     Route: 048
  3. COZAAR [Concomitant]
     Indication: HYPERTENSION
     Route: 048
  4. NOVOLOG [Concomitant]
     Indication: TYPE 1 DIABETES MELLITUS
     Dosage: 70/30
     Route: 058
  5. LEVOTHYROXINE SODIUM [Concomitant]
     Indication: HYPOTHYROIDISM
     Route: 048
  6. DETROL [Concomitant]
     Indication: URINARY INCONTINENCE
     Route: 048
  7. BULK PRODUCERS [Concomitant]
     Route: 048

REACTIONS (8)
  - CARDIOVERSION [None]
  - CATHETERISATION CARDIAC ABNORMAL [None]
  - FATIGUE [None]
  - IMPLANTABLE DEFIBRILLATOR INSERTION [None]
  - MYOCARDIAL INFARCTION [None]
  - STENT OCCLUSION [None]
  - UNRESPONSIVE TO STIMULI [None]
  - VENTRICULAR FIBRILLATION [None]
